FAERS Safety Report 23265859 (Version 2)
Quarter: 2024Q1

REPORT INFORMATION
  Report Type: Report from Study
  Country: IT (occurrence: IT)
  Receive Date: 20231206
  Receipt Date: 20240101
  Transmission Date: 20240410
  Serious: Yes (Other)
  Sender: FDA-Public Use
  Company Number: IT-DAIICHI SANKYO EUROPE GMBH-DSE-2023-147332

PATIENT
  Age: 78 Year
  Sex: Female
  Weight: 68 kg

DRUGS (3)
  1. BEMPEDOIC ACID [Suspect]
     Active Substance: BEMPEDOIC ACID
     Indication: Dyslipidaemia
     Dosage: 180 MG, QD
     Route: 048
     Dates: start: 20230918, end: 20231109
  2. EZIMEGA PLUS [Concomitant]
     Indication: Dyslipidaemia
     Dosage: DIETARY SUPPLEMENT DAILY
     Route: 065
     Dates: start: 20180914
  3. CLOPIDOGREL [Concomitant]
     Active Substance: CLOPIDOGREL BISULFATE
     Indication: Cardiovascular disorder
     Dosage: 75 MG, QD
     Route: 048
     Dates: start: 20190121

REACTIONS (3)
  - Cystitis haemorrhagic [Recovered/Resolved]
  - Gastrointestinal disorder [Recovered/Resolved]
  - Myalgia [Recovered/Resolved]

NARRATIVE: CASE EVENT DATE: 20231030
